FAERS Safety Report 7821520-3 (Version None)
Quarter: 2011Q4

REPORT INFORMATION
  Report Type: 
  Country: None (occurrence: None)
  Receive Date: 20111018
  Receipt Date: 20110613
  Transmission Date: 20120403
  Serious: No
  Sender: FDA-Public Use
  Company Number: US-ASTRAZENECA-2011SE36070

PATIENT
  Age: 61 Year
  Sex: Female
  Weight: 77.1 kg

DRUGS (2)
  1. ALBUTEROL [Concomitant]
  2. SYMBICORT [Suspect]
     Indication: ASTHMA
     Dosage: 160/4.5 2 PUFFS TWO TIMES A DAY
     Route: 055
     Dates: start: 20090101

REACTIONS (2)
  - WEIGHT INCREASED [None]
  - DRUG INEFFECTIVE [None]
